FAERS Safety Report 25607396 (Version 2)
Quarter: 2025Q3

REPORT INFORMATION
  Report Type: Spontaneous
  Country: JP (occurrence: JP)
  Receive Date: 20250725
  Receipt Date: 20250731
  Transmission Date: 20251021
  Serious: Yes (Other)
  Sender: PFIZER
  Company Number: JP-PFIZER INC-PV202500063292

PATIENT
  Age: 60 Year
  Sex: Male
  Weight: 75 kg

DRUGS (7)
  1. ATGAM [Suspect]
     Active Substance: EQUINE THYMOCYTE IMMUNE GLOBULIN
     Indication: Aplastic anaemia
     Dosage: 2750 MG, 1X/DAY
     Route: 041
     Dates: start: 20250526, end: 20250529
  2. FLUCONAZOLE F [Concomitant]
     Route: 048
     Dates: start: 20250526, end: 202505
  3. ZOVIRAX [Concomitant]
     Active Substance: ACYCLOVIR
     Route: 048
     Dates: start: 20250526, end: 202505
  4. RABEPRAZOLE NA MEIJI [Concomitant]
     Route: 048
     Dates: start: 20250526, end: 202505
  5. CYCLOSPORINE [Concomitant]
     Active Substance: CYCLOSPORINE
     Route: 048
     Dates: start: 20250526
  6. CYCLOSPORINE [Concomitant]
     Active Substance: CYCLOSPORINE
     Route: 048
     Dates: start: 20250526
  7. ACETAMINOPHEN [Concomitant]
     Active Substance: ACETAMINOPHEN
     Indication: Premedication
     Route: 048
     Dates: start: 202505

REACTIONS (3)
  - Pruritus [Recovered/Resolved]
  - Erythema [Recovered/Resolved]
  - Rash [Recovered/Resolved]

NARRATIVE: CASE EVENT DATE: 20250526
